FAERS Safety Report 21121259 (Version 1)
Quarter: 2022Q3

REPORT INFORMATION
  Report Type: Spontaneous
  Country: US (occurrence: None)
  Receive Date: 20220722
  Receipt Date: 20220722
  Transmission Date: 20221026
  Serious: Yes (unspecified)
  Sender: FDA-Public Use
  Company Number: None

PATIENT
  Age: 28 Year
  Sex: Female
  Weight: 117.48 kg

DRUGS (1)
  1. VILAZODONE [Suspect]
     Active Substance: VILAZODONE

REACTIONS (4)
  - Depression [None]
  - Abnormal dreams [None]
  - Product substitution issue [None]
  - Screaming [None]

NARRATIVE: CASE EVENT DATE: 20220628
